FAERS Safety Report 11872556 (Version 1)
Quarter: 2015Q4

REPORT INFORMATION
  Report Type: Spontaneous
  Country: US (occurrence: None)
  Receive Date: 20151224
  Receipt Date: 20151224
  Transmission Date: 20160305
  Serious: Yes (Other)
  Sender: FDA-Public Use
  Company Number: None

PATIENT
  Age: 64 Year
  Sex: Male
  Weight: 77.11 kg

DRUGS (7)
  1. MULTI-VITAMINS [Concomitant]
  2. ATORVASTATIN [Suspect]
     Active Substance: ATORVASTATIN
     Indication: BLOOD CHOLESTEROL ABNORMAL
     Dosage: TAKEN BY MOUTH
     Route: 048
     Dates: start: 20151212, end: 20151222
  3. OMEPRAZOLE. [Concomitant]
     Active Substance: OMEPRAZOLE
  4. HCTZ [Concomitant]
     Active Substance: HYDROCHLOROTHIAZIDE
  5. ANDROGEL [Concomitant]
     Active Substance: TESTOSTERONE
  6. CALCIUM [Concomitant]
     Active Substance: CALCIUM
  7. FORTEO [Concomitant]
     Active Substance: TERIPARATIDE

REACTIONS (2)
  - Erectile dysfunction [None]
  - Penis disorder [None]

NARRATIVE: CASE EVENT DATE: 20151219
